FAERS Safety Report 7099735 (Version 12)
Quarter: 2013Q3

REPORT INFORMATION
  Report Type: Spontaneous
  Country: US (occurrence: US)
  Receive Date: 20090828
  Receipt Date: 20130923
  Transmission Date: 20140515
  Serious: Yes (Hospitalization, Other)
  Sender: FDA-Public Use
  Company Number: PHEH2009US09836

PATIENT
  Sex: Male

DRUGS (16)
  1. ZOMETA [Suspect]
     Route: 042
     Dates: end: 200708
  2. PRAMIPEXOLE [Concomitant]
  3. SINEMET [Concomitant]
  4. PAXIL [Concomitant]
  5. DIOVAN [Concomitant]
  6. ZOFRAN [Concomitant]
  7. AMBIEN [Concomitant]
  8. ANZEMET [Concomitant]
  9. CLONIDINE [Concomitant]
  10. VASOTEC [Concomitant]
  11. CIPROFLOXACIN [Concomitant]
  12. ULTRAM [Concomitant]
  13. MIRAPEX [Concomitant]
  14. VITAMIN C [Concomitant]
  15. VITAMIN E [Concomitant]
  16. TYLENOL [Concomitant]

REACTIONS (63)
  - Benign prostatic hyperplasia [Unknown]
  - Nocturia [Not Recovered/Not Resolved]
  - Urinary tract obstruction [Unknown]
  - Thrombocytopenia [Unknown]
  - Hypertonic bladder [Unknown]
  - Parkinson^s disease [Unknown]
  - Hiatus hernia [Unknown]
  - Renal cyst [Unknown]
  - Osteonecrosis of jaw [Unknown]
  - General physical health deterioration [Unknown]
  - Pain [Unknown]
  - Decreased interest [Unknown]
  - Fistula [Unknown]
  - Tooth loss [Unknown]
  - Anxiety [Unknown]
  - Hallucination [Unknown]
  - Fall [Unknown]
  - Chest pain [Unknown]
  - Aortic disorder [Unknown]
  - Osteoporosis [Unknown]
  - Bone disorder [Unknown]
  - Osteopenia [Unknown]
  - Lung hyperinflation [Unknown]
  - Urinary tract infection [Unknown]
  - Nephrolithiasis [Unknown]
  - Cystitis haemorrhagic [Unknown]
  - Actinic keratosis [Unknown]
  - Hypertensive crisis [Unknown]
  - Pleural fibrosis [Unknown]
  - Cardiomegaly [Unknown]
  - Sinus bradycardia [Unknown]
  - Blood urine present [Unknown]
  - Deafness [Unknown]
  - Pollakiuria [Unknown]
  - Somnolence [Unknown]
  - Solar lentigo [Unknown]
  - Constipation [Unknown]
  - Pain in extremity [Unknown]
  - Hypertension [Unknown]
  - Dyspnoea [Unknown]
  - Tremor [Unknown]
  - Amnesia [Unknown]
  - Confusional state [Unknown]
  - Nervousness [Unknown]
  - Depression [Unknown]
  - Eye disorder [Unknown]
  - Injury [Unknown]
  - Cataract [Unknown]
  - Dry eye [Unknown]
  - Insomnia [Unknown]
  - Macular degeneration [Unknown]
  - Diplopia [Unknown]
  - Vision blurred [Unknown]
  - Hypotension [Unknown]
  - Dizziness [Unknown]
  - Basal ganglion degeneration [Unknown]
  - Aortic valve incompetence [Unknown]
  - Tricuspid valve incompetence [Unknown]
  - Multiple system atrophy [Unknown]
  - Urinary incontinence [Unknown]
  - Dysarthria [Unknown]
  - Gait disturbance [Unknown]
  - Dysphagia [Unknown]
